FAERS Safety Report 5024860-9 (Version None)
Quarter: 2006Q2

REPORT INFORMATION
  Report Type: 
  Country: None (occurrence: None)
  Receive Date: 20060607
  Receipt Date: 20060523
  Transmission Date: 20061013
  Serious: Yes (Death, Life-Threatening)
  Sender: FDA-Public Use
  Company Number: APP200600141

PATIENT
  Age: 13 Month
  Sex: Female

DRUGS (3)
  1. HEPARIN SODIUM INJECTION [Suspect]
     Indication: ANTICOAGULANT THERAPY
     Dosage: UNK (UNK, PER STANDARD PROTOCOL), INTRAVENOUS
     Route: 042
  2. PLAVIX [Concomitant]
  3. ASPIRIN [Concomitant]

REACTIONS (10)
  - GASTROINTESTINAL HAEMORRHAGE [None]
  - HEPARIN-INDUCED THROMBOCYTOPENIA [None]
  - INTRACARDIAC THROMBUS [None]
  - MITRAL VALVE DISEASE [None]
  - MULTI-ORGAN FAILURE [None]
  - POST PROCEDURAL COMPLICATION [None]
  - PULMONARY EMBOLISM [None]
  - PULMONARY HAEMORRHAGE [None]
  - RENAL IMPAIRMENT [None]
  - RESPIRATORY FAILURE [None]
